FAERS Safety Report 9399704 (Version 2)
Quarter: 2013Q3

REPORT INFORMATION
  Report Type: Report from Study
  Country: US (occurrence: US)
  Receive Date: 20130715
  Receipt Date: 20130821
  Transmission Date: 20140515
  Serious: Yes (Hospitalization)
  Sender: FDA-Public Use
  Company Number: US-JNJFOC-20130705494

PATIENT
  Age: 17 Year
  Sex: Male
  Weight: 51.4 kg

DRUGS (4)
  1. REMICADE [Suspect]
     Indication: INFLAMMATORY BOWEL DISEASE
     Route: 042
     Dates: start: 20091216
  2. MULTIVITAMINS [Concomitant]
     Route: 065
  3. LOPERAMIDE [Concomitant]
     Route: 065
  4. IBUPROFEN [Concomitant]
     Route: 065

REACTIONS (1)
  - Pouchitis [Recovered/Resolved]
